FAERS Safety Report 8990439 (Version 1)
Quarter: 2012Q4

REPORT INFORMATION
  Report Type: Report from Study
  Country: IE (occurrence: IE)
  Receive Date: 20121228
  Receipt Date: 20121228
  Transmission Date: 20130627
  Serious: Yes (Death)
  Sender: FDA-Public Use
  Company Number: IE-ASTELLAS-2012EU011111

PATIENT
  Age: 73 Year
  Sex: Male
  Weight: 70 kg

DRUGS (3)
  1. ENZALUTAMIDE [Suspect]
     Indication: PROSTATE CANCER
     Dosage: 40 mg, qid
     Route: 048
     Dates: start: 20120904, end: 20121005
  2. DIGOXIN [Concomitant]
     Indication: ATRIAL FIBRILLATION
     Dosage: 0.125 mg, Unknown/D
     Route: 048
  3. DIGOXIN [Concomitant]
     Indication: CARDIAC FAILURE CONGESTIVE

REACTIONS (1)
  - Death [Fatal]
